FAERS Safety Report 23295799 (Version 1)
Quarter: 2023Q4

REPORT INFORMATION
  Report Type: Spontaneous
  Country: US (occurrence: US)
  Receive Date: 20231214
  Receipt Date: 20231214
  Transmission Date: 20240109
  Serious: No
  Sender: FDA-Public Use
  Company Number: US-SANDOZ-SDZ2023US067651

PATIENT
  Age: 37 Year
  Sex: Female
  Weight: 79.365 kg

DRUGS (5)
  1. CLOBETASOL [Suspect]
     Active Substance: CLOBETASOL
     Indication: Product used for unknown indication
     Dosage: 0.05%
     Route: 065
  2. FLUOCINONIDE [Suspect]
     Active Substance: FLUOCINONIDE
     Indication: Product used for unknown indication
     Dosage: UNK
     Route: 065
  3. PIMECROLIMUS [Suspect]
     Active Substance: PIMECROLIMUS
     Indication: Psoriasis
     Dosage: 1 %, BID
     Route: 061
  4. TACROLIMUS [Suspect]
     Active Substance: TACROLIMUS
     Indication: Product used for unknown indication
     Dosage: 0.01%
     Route: 065
  5. TRIAMCINOLONE [Suspect]
     Active Substance: TRIAMCINOLONE
     Indication: Psoriasis
     Dosage: UNK
     Route: 065

REACTIONS (1)
  - Drug ineffective [Unknown]

NARRATIVE: CASE EVENT DATE: 20231103
